FAERS Safety Report 17838513 (Version 43)
Quarter: 2025Q4

REPORT INFORMATION
  Report Type: Report from Study
  Country: CO (occurrence: CO)
  Receive Date: 20200528
  Receipt Date: 20251008
  Transmission Date: 20260118
  Serious: Yes (Hospitalization, Disabling, Other)
  Sender: NOVARTIS
  Company Number: NVSC2020CO055412

PATIENT
  Sex: Female
  Weight: 58 kg

DRUGS (12)
  1. COSENTYX [Suspect]
     Active Substance: SECUKINUMAB
     Indication: Psoriatic arthropathy
     Dosage: 150 MG, QMO
     Route: 058
     Dates: start: 20160302
  2. COSENTYX [Suspect]
     Active Substance: SECUKINUMAB
     Indication: Psoriasis
     Dosage: 150 MG, QMO
     Route: 058
     Dates: start: 20170406
  3. COSENTYX [Suspect]
     Active Substance: SECUKINUMAB
     Dosage: 150 MG, QMO
     Route: 058
     Dates: start: 20170807
  4. COSENTYX [Suspect]
     Active Substance: SECUKINUMAB
     Dosage: 300 MG, QMO
     Route: 058
     Dates: start: 20170928
  5. COSENTYX [Suspect]
     Active Substance: SECUKINUMAB
     Dosage: 150 MG, QMO
     Route: 058
     Dates: start: 20170929
  6. COSENTYX [Suspect]
     Active Substance: SECUKINUMAB
     Dosage: 150 MG, UNKNOWN
     Route: 058
     Dates: start: 20180725
  7. COSENTYX [Suspect]
     Active Substance: SECUKINUMAB
     Dosage: 150 MG, QMO
     Route: 058
     Dates: start: 20190307
  8. COSENTYX [Suspect]
     Active Substance: SECUKINUMAB
     Dosage: 150 MG, QMO
     Route: 058
     Dates: start: 20191220
  9. COSENTYX [Suspect]
     Active Substance: SECUKINUMAB
     Dosage: 150 MG, QMO
     Route: 058
  10. COSENTYX [Suspect]
     Active Substance: SECUKINUMAB
     Dosage: 300 MG, QMO
     Route: 058
  11. COSENTYX [Suspect]
     Active Substance: SECUKINUMAB
     Dosage: 150 MG, QMO (STOPPED 3 MONTHS AGO)
     Route: 058
  12. COSENTYX [Suspect]
     Active Substance: SECUKINUMAB
     Dosage: UNK
     Route: 065
     Dates: start: 20250428

REACTIONS (58)
  - Syncope [Recovering/Resolving]
  - Electric shock sensation [Unknown]
  - Dysarthria [Unknown]
  - Vertigo [Unknown]
  - Head injury [Unknown]
  - Illness [Unknown]
  - Hypertensive crisis [Unknown]
  - Arthralgia [Recovering/Resolving]
  - Skin plaque [Recovering/Resolving]
  - Blood pressure increased [Unknown]
  - Psoriatic arthropathy [Unknown]
  - Skin lesion [Unknown]
  - Arthritis [Unknown]
  - Pruritus [Unknown]
  - Psoriasis [Unknown]
  - Hand deformity [Unknown]
  - SARS-CoV-2 test positive [Recovering/Resolving]
  - Skin haemorrhage [Unknown]
  - Breast pain [Not Recovered/Not Resolved]
  - Abdominal pain upper [Not Recovered/Not Resolved]
  - Weight decreased [Not Recovered/Not Resolved]
  - Influenza [Unknown]
  - Oropharyngeal pain [Unknown]
  - Depression [Unknown]
  - Stress [Recovered/Resolved]
  - Blood potassium decreased [Unknown]
  - Blood glucose decreased [Unknown]
  - Viral infection [Unknown]
  - Cold sweat [Unknown]
  - Vomiting [Unknown]
  - Scratch [Unknown]
  - Rash macular [Recovered/Resolved]
  - Nasal congestion [Recovering/Resolving]
  - Cough [Recovering/Resolving]
  - Hypersensitivity [Unknown]
  - Memory impairment [Unknown]
  - Arthropathy [Unknown]
  - Gait disturbance [Unknown]
  - Finger deformity [Recovering/Resolving]
  - Stress [Unknown]
  - Dysphonia [Unknown]
  - Nervousness [Unknown]
  - Condition aggravated [Unknown]
  - Pain in extremity [Recovering/Resolving]
  - Nasopharyngitis [Recovering/Resolving]
  - Feeling drunk [Unknown]
  - Dizziness [Unknown]
  - Malaise [Unknown]
  - Weight increased [Unknown]
  - Product communication issue [Unknown]
  - Drug ineffective [Not Recovered/Not Resolved]
  - Anxiety [Unknown]
  - Overweight [Unknown]
  - Ischaemia [Unknown]
  - Skin exfoliation [Unknown]
  - Tooth injury [Unknown]
  - Toothache [Not Recovered/Not Resolved]
  - Visual impairment [Unknown]

NARRATIVE: CASE EVENT DATE: 20190101
